FAERS Safety Report 20660589 (Version 2)
Quarter: 2022Q2

REPORT INFORMATION
  Report Type: Spontaneous
  Country: US (occurrence: US)
  Receive Date: 20220331
  Receipt Date: 20220419
  Transmission Date: 20220720
  Serious: Yes (Death, Disabling)
  Sender: FDA-Public Use
  Company Number: US-PFIZER INC-202200488556

PATIENT
  Age: 69 Year
  Sex: Female
  Weight: 59.864 kg

DRUGS (3)
  1. PAXLOVID [Suspect]
     Active Substance: NIRMATRELVIR\RITONAVIR
     Indication: COVID-19 treatment
     Dosage: [PF-07321332 300 MG]/[RITONAVIR 100 MG]; 2X/DAY
     Route: 048
     Dates: start: 20220324, end: 20220325
  2. PAXLOVID [Suspect]
     Active Substance: NIRMATRELVIR\RITONAVIR
     Dosage: SEPARATED NIRMATRELBIR AND RITONADIR, ADJUST THE DOSING
     Route: 048
     Dates: start: 20220326
  3. PAXLOVID [Suspect]
     Active Substance: NIRMATRELVIR\RITONAVIR
     Dosage: 150 MG, 2X/DAY
     Route: 048
     Dates: start: 20220326, end: 20220326

REACTIONS (5)
  - Abdominal pain [Fatal]
  - Dysgeusia [Fatal]
  - Abdominal pain upper [Recovering/Resolving]
  - Dysstasia [Recovering/Resolving]
  - Intentional product misuse [Unknown]

NARRATIVE: CASE EVENT DATE: 20220325
